FAERS Safety Report 9671739 (Version 3)
Quarter: 2014Q1

REPORT INFORMATION
  Report Type: Spontaneous
  Country: CA (occurrence: CA)
  Receive Date: 20131106
  Receipt Date: 20140117
  Transmission Date: 20141002
  Serious: Yes (Hospitalization)
  Sender: FDA-Public Use
  Company Number: CA-SA-2013SA112472

PATIENT
  Age: 33 Year
  Sex: Male
  Weight: 64 kg

DRUGS (17)
  1. FABRAZYME [Suspect]
     Indication: FABRY^S DISEASE
     Dosage: DOSE : 65 MG Q2W
     Route: 042
     Dates: start: 20130102
  2. FABRAZYME [Suspect]
     Indication: FABRY^S DISEASE
     Dosage: DOSE : 65 MG Q2W
     Route: 042
     Dates: start: 20130102
  3. ACETYLSALICYLIC ACID [Concomitant]
     Dosage: ANTI-PLATELET AGGREGATION
     Dates: start: 2012
  4. LOSARTAN [Concomitant]
     Dosage: ANGIOTENSIN RECEPTOR BLOCKER
     Dates: start: 201305
  5. AMLODIPINE [Concomitant]
     Dosage: CALCIUM CHANNEL BLOCKER
     Dates: start: 2012
  6. CALCIUM ACETATE [Concomitant]
     Indication: SUPPLEMENTATION THERAPY
     Dates: start: 201303
  7. FOLIC ACID [Concomitant]
     Indication: SUPPLEMENTATION THERAPY
     Dates: start: 201306
  8. COLACE [Concomitant]
     Dosage: STOOL SOFTENER
     Dates: start: 201306
  9. KEPPRA [Concomitant]
     Indication: CONVULSION
     Dosage: 250 MG BID AND 250 MG POST EACH DIALYSIS RUN
     Dates: start: 201306
  10. RENA-VITE [Concomitant]
     Indication: SUPPLEMENTATION THERAPY
     Dosage: 1 TABLET QD
     Dates: start: 201303
  11. GABAPENTIN [Concomitant]
     Indication: PARAESTHESIA
     Dosage: QHS
     Dates: start: 2013
  12. ALFACALCIDOL [Concomitant]
     Indication: SUPPLEMENTATION THERAPY
     Dosage: 4 TIMES PER WEEK
     Dates: start: 201303
  13. PANTOPRAZOLE [Concomitant]
     Dosage: PROTON-PUMP INHIBITOR
     Dates: start: 201306
  14. DARBEPOETIN ALFA [Concomitant]
     Indication: ANAEMIA
     Dosage: QW ON H.D.
     Route: 042
     Dates: start: 201306
  15. PLAVIX [Concomitant]
     Indication: ANTIPLATELET THERAPY
     Dates: start: 201306
  16. BISOPROLOL [Concomitant]
     Dosage: BETA-BLOCKER
     Dates: start: 201306
  17. ROSUVASTATIN [Concomitant]
     Dosage: STATIN
     Dates: start: 201306

REACTIONS (6)
  - Convulsion [Recovered/Resolved]
  - Confusional state [Recovered/Resolved]
  - Azotaemia [Not Recovered/Not Resolved]
  - Hypertension [Unknown]
  - Nausea [Recovered/Resolved]
  - Vomiting [Recovered/Resolved]
